FAERS Safety Report 8987959 (Version 2)
Quarter: 2014Q2

REPORT INFORMATION
  Report Type: Spontaneous
  Country: US (occurrence: US)
  Receive Date: 20121227
  Receipt Date: 20140625
  Transmission Date: 20141212
  Serious: Yes (Other)
  Sender: FDA-Public Use
  Company Number: US-ASTRAZENECA-2012SE25250

PATIENT
  Age: 48 Year
  Sex: Female

DRUGS (2)
  1. NEXIUM [Suspect]
     Indication: GASTROOESOPHAGEAL REFLUX DISEASE
     Route: 048
  2. PYRIDIUM [Concomitant]

REACTIONS (10)
  - Blindness unilateral [Unknown]
  - Eye injury [Unknown]
  - Nerve injury [Unknown]
  - Cerebrovascular accident [Unknown]
  - Gastrooesophageal reflux disease [Unknown]
  - Feeling abnormal [Unknown]
  - Visual impairment [Unknown]
  - Abdominal discomfort [Unknown]
  - Malaise [Unknown]
  - Drug dose omission [Unknown]
